FAERS Safety Report 16739169 (Version 1)
Quarter: 2019Q3

REPORT INFORMATION
  Report Type: Spontaneous
  Country: US (occurrence: US)
  Receive Date: 20190826
  Receipt Date: 20190826
  Transmission Date: 20191005
  Serious: No
  Sender: FDA-Public Use
  Company Number: US-OREXO US, INC.-E2B_00000119

PATIENT
  Age: 62 Year
  Sex: Female
  Weight: 90.26 kg

DRUGS (12)
  1. SIMVASTATIN. [Concomitant]
     Active Substance: SIMVASTATIN
  2. AMBIEN [Concomitant]
     Active Substance: ZOLPIDEM TARTRATE
  3. MELATONIN [Concomitant]
     Active Substance: MELATONIN
  4. ATENOLOL. [Concomitant]
     Active Substance: ATENOLOL
     Indication: HYPERTENSION
  5. MULTI VITAMIN [Concomitant]
     Active Substance: VITAMINS
  6. LEVOTHYROXINE. [Concomitant]
     Active Substance: LEVOTHYROXINE
  7. NEURONTIN [Concomitant]
     Active Substance: GABAPENTIN
  8. LASIX [Concomitant]
     Active Substance: FUROSEMIDE
  9. MILK THISTLE [Concomitant]
     Active Substance: DIETARY SUPPLEMENT\HERBALS\MILK THISTLE
  10. ZUBSOLV [Suspect]
     Active Substance: BUPRENORPHINE HYDROCHLORIDE\NALOXONE HYDROCHLORIDE
     Indication: MOOD ALTERED
     Dosage: 2.9 MG/ 0.71 MG; TWICE A DAY
     Route: 060
     Dates: start: 20180928, end: 20181001
  11. CLONIDINE. [Concomitant]
     Active Substance: CLONIDINE
     Indication: HYPERTENSION
  12. POTASSIUM [Concomitant]
     Active Substance: POTASSIUM

REACTIONS (4)
  - Wrong technique in product usage process [Unknown]
  - Off label use [Unknown]
  - Hypertension [Not Recovered/Not Resolved]
  - Anxiety [Not Recovered/Not Resolved]

NARRATIVE: CASE EVENT DATE: 20180928
